FAERS Safety Report 17841802 (Version 1)
Quarter: 2020Q2

REPORT INFORMATION
  Report Type: Spontaneous
  Country: US (occurrence: US)
  Receive Date: 20200529
  Receipt Date: 20200529
  Transmission Date: 20200714
  Serious: Yes (Other)
  Sender: FDA-Public Use
  Company Number: US-NAPPMUNDI-USA-2020-0153083

PATIENT
  Sex: Male

DRUGS (19)
  1. TUBERSOL [Concomitant]
     Active Substance: TUBERCULIN PURIFIED PROTEIN DERIVATIVE
     Indication: PRODUCT USED FOR UNKNOWN INDICATION
     Dosage: 5 UNIT/0.1 ML, EVERY DAY SHIFT EVERY 12 MONTHS
     Route: 023
     Dates: start: 20170525
  2. MULTIVITAMINS W/MINERALS [Concomitant]
     Active Substance: MINERALS\VITAMINS
     Indication: WOUND HEALING NORMAL
     Dosage: 1 TABLET ONE TIME A DAY
     Route: 048
     Dates: start: 20170524
  3. BACTROBAN [Concomitant]
     Active Substance: MUPIROCIN\MUPIROCIN CALCIUM
     Indication: FURUNCLE
     Dosage: UNKNOWN
     Route: 061
     Dates: start: 20170524
  4. BACTROBAN [Concomitant]
     Active Substance: MUPIROCIN\MUPIROCIN CALCIUM
     Dosage: UNK
     Route: 061
     Dates: start: 20170525
  5. FLEET ENEMA                        /00129701/ [Concomitant]
     Indication: CONSTIPATION
     Dosage: 7-19GM/118ML EVERY 24HRS AS NEEDED
     Route: 054
     Dates: start: 20170520
  6. METOPROLOL TARTRATE. [Concomitant]
     Active Substance: METOPROLOL TARTRATE
     Indication: ESSENTIAL HYPERTENSION
     Dosage: 50 MG, BID
     Route: 048
     Dates: start: 20170522
  7. CARDIZEM [Concomitant]
     Active Substance: DILTIAZEM HYDROCHLORIDE
     Indication: ESSENTIAL HYPERTENSION
     Dosage: 240 MG, QID
     Dates: start: 20170523
  8. BISCOLAX [Concomitant]
     Active Substance: BISACODYL
     Indication: CONSTIPATION
     Dosage: 10 MG, EVERY 24HRS AS NEEDED
     Route: 054
     Dates: start: 20170520
  9. ASPIRIN. [Concomitant]
     Active Substance: ASPIRIN
     Indication: ESSENTIAL HYPERTENSION
     Dosage: 81 MG, DAILY
     Route: 048
     Dates: start: 20170518
  10. LISINOPRIL. [Concomitant]
     Active Substance: LISINOPRIL
     Indication: ESSENTIAL HYPERTENSION
     Dosage: 5 MG, QID
     Route: 048
     Dates: start: 20170523
  11. GLUCAGON. [Concomitant]
     Active Substance: GLUCAGON
     Indication: PRODUCT USED FOR UNKNOWN INDICATION
     Dosage: 1 MG, AS NEEDED
     Route: 030
  12. MILK OF MAGNESIA [Concomitant]
     Active Substance: MAGNESIUM HYDROXIDE
     Indication: CONSTIPATION
     Dosage: 400MG/5ML, 30ML EVERY 24HRS AS NEEDED
     Route: 048
     Dates: start: 20170520
  13. HUMALOG [Concomitant]
     Active Substance: INSULIN LISPRO
     Indication: TYPE 2 DIABETES MELLITUS
     Dosage: 100UNIT/ML; TWO TIMES A DAY
     Route: 058
     Dates: start: 20170608
  14. OXYCODONE HYDROCHLORIDE (SIMILAR TO NDA 22-272) [Suspect]
     Active Substance: OXYCODONE HYDROCHLORIDE
     Indication: PAIN
     Dosage: 30 MG, EVERY 4HOURS AS NEEDED
     Route: 048
     Dates: start: 20170518
  15. APIXABAN [Concomitant]
     Active Substance: APIXABAN
     Indication: ATRIAL FIBRILLATION
     Dosage: 5 MG, BID
     Route: 048
     Dates: start: 20170518
  16. METFORMIN [Concomitant]
     Active Substance: METFORMIN HYDROCHLORIDE
     Indication: TYPE 2 DIABETES MELLITUS
     Dosage: 1000 MG, BID
     Route: 048
     Dates: start: 20170518
  17. NYSTATIN. [Concomitant]
     Active Substance: NYSTATIN
     Indication: FUNGAL INFECTION
     Dosage: 100000 UNIT/GM
     Route: 061
     Dates: start: 20170613
  18. BACTROBAN [Concomitant]
     Active Substance: MUPIROCIN\MUPIROCIN CALCIUM
     Dosage: UNKNOWN
     Route: 061
     Dates: start: 20170527
  19. SYNTHROID [Concomitant]
     Active Substance: LEVOTHYROXINE SODIUM
     Indication: HYPOTHYROIDISM
     Dosage: 100 MCG, IN THE MORNING
     Route: 048

REACTIONS (2)
  - Near death experience [Unknown]
  - Emergency care [Unknown]
